FAERS Safety Report 16726727 (Version 1)
Quarter: 2019Q3

REPORT INFORMATION
  Report Type: Spontaneous
  Country: US (occurrence: US)
  Receive Date: 20190821
  Receipt Date: 20190821
  Transmission Date: 20191005
  Serious: Yes (Other)
  Sender: FDA-Public Use
  Company Number: US-NOVOPROD-679545

PATIENT
  Age: 66 Year
  Sex: Female

DRUGS (1)
  1. SAXENDA [Suspect]
     Active Substance: LIRAGLUTIDE
     Indication: PRODUCT USED FOR UNKNOWN INDICATION
     Dosage: IN DOSE ESCALATION
     Route: 058
     Dates: start: 20170914, end: 20171128

REACTIONS (3)
  - Chest discomfort [Recovered/Resolved]
  - Pneumonia [Recovered/Resolved]
  - Dyspnoea [Recovered/Resolved]

NARRATIVE: CASE EVENT DATE: 2017
